FAERS Safety Report 10207479 (Version 1)
Quarter: 2014Q2

REPORT INFORMATION
  Report Type: Spontaneous
  Country: US (occurrence: US)
  Receive Date: 20140530
  Receipt Date: 20140530
  Transmission Date: 20141212
  Serious: No
  Sender: FDA-Public Use
  Company Number: US-GLAXOSMITHKLINE-A1044742A

PATIENT
  Age: 60 Year
  Sex: Male

DRUGS (6)
  1. VENTOLIN [Suspect]
     Indication: ASTHMA
     Dosage: 1PUFF FOUR TIMES PER DAY
     Route: 055
  2. ASTELIN NASAL SPRAY [Concomitant]
  3. SPIRIVA [Concomitant]
  4. HYZAAR [Concomitant]
  5. LIDEX CREAM [Concomitant]
  6. LORTAB [Concomitant]

REACTIONS (2)
  - Dyspnoea [Unknown]
  - Product quality issue [Unknown]
